FAERS Safety Report 4472650-8 (Version None)
Quarter: 2004Q4

REPORT INFORMATION
  Report Type: 
  Country: None (occurrence: None)
  Receive Date: 20041008
  Receipt Date: 20040921
  Transmission Date: 20050328
  Serious: Yes (Hospitalization, Other)
  Sender: FDA-Public Use
  Company Number: FR_031203326

PATIENT
  Age: 47 Year
  Sex: Female
  Weight: 77 kg

DRUGS (10)
  1. PROZAC [Suspect]
     Indication: DEPRESSION
  2. PROPOFOL [Concomitant]
  3. ADVIL [Concomitant]
  4. NEXEN (NIMESULIDE) [Concomitant]
  5. RABEPRAZOLE SODIUM [Concomitant]
  6. PIROXICAM [Concomitant]
  7. FURADANTIN [Concomitant]
  8. ZINAT (CEFUROXIME AXETIL) [Concomitant]
  9. ACETAMINOPHEN [Concomitant]
  10. VIRLIX (CETIRIZINE HYDROCHLORIDE) [Concomitant]

REACTIONS (8)
  - CHOLANGITIS SCLEROSING [None]
  - ESCHERICHIA URINARY TRACT INFECTION [None]
  - HEPATITIS ACUTE [None]
  - HEPATITIS CHOLESTATIC [None]
  - HYPOKALAEMIA [None]
  - HYPONATRAEMIA [None]
  - LYMPHOPENIA [None]
  - STEVENS-JOHNSON SYNDROME [None]
